FAERS Safety Report 25379196 (Version 3)
Quarter: 2025Q4

REPORT INFORMATION
  Report Type: Spontaneous
  Country: EU (occurrence: EU)
  Receive Date: 20250530
  Receipt Date: 20251120
  Transmission Date: 20260117
  Serious: Yes (Hospitalization)
  Sender: TEVA
  Company Number: EU-ROCHE-10000273445

PATIENT
  Age: 61 Year
  Sex: Female
  Weight: 55.9 kg

DRUGS (13)
  1. CAPECITABINE [Suspect]
     Active Substance: CAPECITABINE
     Indication: Triple negative breast cancer
     Dosage: 25-APR-2025: LAST DOSE RECEIVED 2000 MG
     Route: 048
     Dates: start: 20250318
  2. CAPECITABINE [Suspect]
     Active Substance: CAPECITABINE
     Indication: Triple negative breast cancer
     Dosage: 1300 MG 5/7 DAYS DURING RADIOTHERAPY: SUSPENDED
     Route: 048
  3. TIRAGOLUMAB [Suspect]
     Active Substance: TIRAGOLUMAB
     Indication: Triple negative breast cancer
     Dosage: ON 23-APR-2025, SHE RECEIVED HER MOST RECENT DOSE OF TIRAGOLIMAB 600 MG  PRIOR TO AE. LAST CYCLE ...
     Route: 042
     Dates: start: 20240729
  4. DOXORUBICIN [Suspect]
     Active Substance: DOXORUBICIN
     Indication: Triple negative breast cancer
     Dosage: ON 08-JAN-2025, SHE RECEIVED HER MOST RECENT DOSE OF DOXORUBICIN 60 MG/M2 PRIOR TO AE. CUMULATIVE...
     Route: 042
     Dates: start: 20241107
  5. CYCLOPHOSPHAMIDE [Suspect]
     Active Substance: CYCLOPHOSPHAMIDE
     Indication: Triple negative breast cancer
     Dosage: ON 08-JAN-2025, SHE RECEIVED HER MOST RECENT DODSE OF CYCLOPHOSPHAMIDE 600 MG/M2 PRIOR TO AE. LAS...
     Route: 042
     Dates: start: 20241107
  6. ATEZOLIZUMAB [Suspect]
     Active Substance: ATEZOLIZUMAB
     Indication: Triple negative breast cancer
     Dosage: ON 23-APR-2025, SHE RECEIVED HER MOST RECENT DOSE OF ATEZOLIZUMAB 1200 MG PRIOR TO AE. CYCLE 3 DA...
     Route: 042
     Dates: start: 20240729
  7. PACLITAXEL [Suspect]
     Active Substance: PACLITAXEL
     Indication: Triple negative breast cancer
     Dosage: ON 23-OCT-2024, SHE RECEIVED HER MOST RECENT DOSE OF NAB PACLITAXEL 170 MG PRIOR TO AE. CUMULATIV...
     Route: 042
     Dates: start: 20240729
  8. LEVOTHYROXINE [Concomitant]
     Active Substance: LEVOTHYROXINE
     Indication: Thyroidectomy
     Route: 048
     Dates: start: 20241204
  9. LEVOTHYROXINE [Concomitant]
     Active Substance: LEVOTHYROXINE
     Indication: Thyroidectomy
     Route: 048
     Dates: end: 20241204
  10. ATORVASTATIN [Concomitant]
     Active Substance: ATORVASTATIN
     Indication: Product used for unknown indication
     Route: 048
     Dates: start: 202311
  11. ZOLPIDEM [Concomitant]
     Active Substance: ZOLPIDEM TARTRATE
     Indication: Product used for unknown indication
     Route: 048
     Dates: start: 202406
  12. CARBOPLATIN [Suspect]
     Active Substance: CARBOPLATIN
     Indication: Triple negative breast cancer
     Dosage: ON 08-OCT-2024, SHE RECEIVED HER MOST RECENT DOSE OF CARBOPLATINE 450 MG PRIOR TO AE. CUMULATIVE ...
     Route: 042
     Dates: start: 20240729
  13. SORBILINE [Concomitant]
     Indication: Product used for unknown indication
     Route: 065
     Dates: start: 202401

REACTIONS (1)
  - Colitis [Recovered/Resolved]

NARRATIVE: CASE EVENT DATE: 20250425
